FAERS Safety Report 25750647 (Version 1)
Quarter: 2025Q3

REPORT INFORMATION
  Report Type: Spontaneous
  Country: US (occurrence: None)
  Receive Date: 20250829
  Receipt Date: 20250829
  Transmission Date: 20251020
  Serious: Yes (Hospitalization)
  Sender: FDA-CTU
  Company Number: None

PATIENT
  Age: 27 Year
  Sex: Female

DRUGS (13)
  1. XULANE [Suspect]
     Active Substance: ETHINYL ESTRADIOL\NORELGESTROMIN
     Indication: Contraception
     Route: 062
     Dates: start: 20240320, end: 20240403
  2. NEXPLANON [Suspect]
     Active Substance: ETONOGESTREL
  3. LISDEXAMFETAMINE [Concomitant]
     Active Substance: LISDEXAMFETAMINE
  4. ESCITALOPRAM [Concomitant]
     Active Substance: ESCITALOPRAM OXALATE
  5. BUPROPION [Concomitant]
     Active Substance: BUPROPION
  6. PRAZOSIN [Concomitant]
     Active Substance: PRAZOSIN
  7. CETIRIZINE HYDROCHLORIDE [Concomitant]
     Active Substance: CETIRIZINE HYDROCHLORIDE
  8. VITAMIN B12 [Concomitant]
     Active Substance: CYANOCOBALAMIN
  9. VITAMIN D3 [Concomitant]
     Active Substance: CHOLECALCIFEROL
  10. TYROSINE [Concomitant]
     Active Substance: TYROSINE
  11. Ferrasorb [Concomitant]
  12. Fish Oil softgel [Concomitant]
  13. FLUTICASONE PROPIONATE [Concomitant]
     Active Substance: FLUTICASONE PROPIONATE

REACTIONS (6)
  - Weight increased [None]
  - Mood swings [None]
  - Jaundice [None]
  - Chills [None]
  - Influenza like illness [None]
  - Hepatic pain [None]

NARRATIVE: CASE EVENT DATE: 20240403
